FAERS Safety Report 8145733-9 (Version None)
Quarter: 2012Q1

REPORT INFORMATION
  Report Type: 
  Country: None (occurrence: None)
  Receive Date: 20120217
  Receipt Date: 20120210
  Transmission Date: 20120608
  Serious: Yes (Other)
  Sender: FDA-Public Use
  Company Number: US-ELI_LILLY_AND_COMPANY-US201201006387

PATIENT
  Sex: Female
  Weight: 149 kg

DRUGS (12)
  1. BYETTA [Suspect]
     Indication: TYPE 2 DIABETES MELLITUS
     Dosage: 5 UG, BID
     Dates: start: 20110516, end: 20110606
  2. MELOXICAM [Concomitant]
     Indication: ARTHRITIS
     Dosage: 15 MG, QD
     Route: 048
  3. TRAMADOL HCL [Concomitant]
     Indication: ARTHRITIS
     Dosage: 50 MG, PRN
     Route: 048
  4. NSAID'S [Concomitant]
  5. BYETTA [Suspect]
     Dosage: 10 UG, BID
     Route: 058
     Dates: start: 20110607, end: 20120116
  6. ASPIRIN [Concomitant]
     Indication: PROPHYLAXIS
     Dosage: 81 MG, QD
     Route: 048
  7. DILTIAZEM HCL [Concomitant]
     Indication: HYPERTENSION
     Dosage: 180 MG, UNK
     Route: 048
  8. LANSOPRAZOLE [Concomitant]
     Indication: GASTROOESOPHAGEAL REFLUX DISEASE
     Dosage: 30 MG, UNK
     Route: 048
  9. PROZAC [Concomitant]
     Indication: DEPRESSION
     Dosage: 40 MG, QD
     Route: 048
  10. ADVAIR DISKUS 100/50 [Concomitant]
     Indication: ASTHMA
     Dosage: 1 DF, UNK
     Route: 055
  11. ROPINIROLE [Concomitant]
     Indication: RESTLESS LEGS SYNDROME
     Dosage: 0.5 MG, UNK
     Route: 048
  12. COZAAR [Concomitant]
     Indication: HYPERTENSION
     Dosage: 50 MG, QD
     Route: 048

REACTIONS (2)
  - PANCREATITIS [None]
  - CHOLELITHIASIS [None]
